FAERS Safety Report 23660613 (Version 1)
Quarter: 2024Q1

REPORT INFORMATION
  Report Type: Spontaneous
  Country: CH (occurrence: CH)
  Receive Date: 20240322
  Receipt Date: 20240322
  Transmission Date: 20240409
  Serious: Yes (Death, Other)
  Sender: FDA-Public Use
  Company Number: None

PATIENT
  Age: 87 Year
  Sex: Female
  Weight: 48 kg

DRUGS (6)
  1. RISPERDAL [Suspect]
     Active Substance: RISPERIDONE
     Indication: Delirium
     Dosage: AS NEEDED
     Route: 048
     Dates: start: 20240204, end: 20240205
  2. FERINJECT [Suspect]
     Active Substance: FERRIC CARBOXYMALTOSE
     Indication: Iron deficiency anaemia
     Route: 042
     Dates: start: 20240204, end: 20240204
  3. ACETAMINOPHEN [Concomitant]
     Active Substance: ACETAMINOPHEN
     Indication: Pain management
     Dosage: IN TOTAL
     Route: 042
     Dates: start: 20240204
  4. FRAGMIN [Concomitant]
     Active Substance: DALTEPARIN SODIUM
     Indication: Thrombosis prophylaxis
     Route: 058
     Dates: start: 20240203, end: 20240204
  5. PANTOPRAZOLE SODIUM [Concomitant]
     Active Substance: PANTOPRAZOLE SODIUM
     Indication: Dysphagia
     Dosage: FIXMEDIKATION
     Route: 042
  6. RISPERDAL [Concomitant]
     Active Substance: RISPERIDONE
     Indication: Product used for unknown indication
     Dosage: AS NEEDED
     Route: 065

REACTIONS (8)
  - Death [Fatal]
  - Hypertensive emergency [Fatal]
  - Hypoxia [Fatal]
  - Micturition urgency [Fatal]
  - Choking [Fatal]
  - Chest pain [Fatal]
  - Nausea [Fatal]
  - Tachycardia [Fatal]

NARRATIVE: CASE EVENT DATE: 20240204
